FAERS Safety Report 10047567 (Version 6)
Quarter: 2018Q1

REPORT INFORMATION
  Report Type: Spontaneous
  Country: JP (occurrence: JP)
  Receive Date: 20140331
  Receipt Date: 20180314
  Transmission Date: 20180508
  Serious: Yes (Disabling)
  Sender: FDA-Public Use
  Company Number: JP-JNJFOC-20140313414

PATIENT
  Age: 74 Year
  Sex: Female
  Weight: 66 kg

DRUGS (44)
  1. DOXORUBICIN HYDROCHLORIDE (DOXIL [Suspect]
     Active Substance: DOXORUBICIN HYDROCHLORIDE
     Indication: OVARIAN CANCER STAGE III
     Route: 042
     Dates: start: 20090526, end: 20090526
  2. DOXORUBICIN HYDROCHLORIDE (DOXIL [Suspect]
     Active Substance: DOXORUBICIN HYDROCHLORIDE
     Indication: OVARIAN CANCER STAGE III
     Route: 042
     Dates: start: 20101207, end: 20101207
  3. DECADRON [Concomitant]
     Active Substance: DEXAMETHASONE
     Indication: CHEMOTHERAPY
     Route: 017
     Dates: start: 20090526, end: 20110217
  4. INFLUENZA HA VACCINE [Concomitant]
     Active Substance: INFLUENZA VIRUS VACCINE
     Indication: ANTIVIRAL PROPHYLAXIS
     Route: 058
     Dates: start: 20101122, end: 20101122
  5. DOXORUBICIN HYDROCHLORIDE (DOXIL [Suspect]
     Active Substance: DOXORUBICIN HYDROCHLORIDE
     Indication: OVARIAN CANCER STAGE III
     Route: 042
     Dates: start: 20090728, end: 20090728
  6. DOXORUBICIN HYDROCHLORIDE (DOXIL [Suspect]
     Active Substance: DOXORUBICIN HYDROCHLORIDE
     Indication: OVARIAN CANCER STAGE III
     Route: 042
     Dates: start: 20091029, end: 20091029
  7. DOXORUBICIN HYDROCHLORIDE (DOXIL [Suspect]
     Active Substance: DOXORUBICIN HYDROCHLORIDE
     Indication: OVARIAN CANCER STAGE III
     Route: 042
     Dates: start: 20100518, end: 20100518
  8. DOXORUBICIN HYDROCHLORIDE (DOXIL [Suspect]
     Active Substance: DOXORUBICIN HYDROCHLORIDE
     Indication: OVARIAN CANCER STAGE III
     Route: 042
     Dates: start: 20100826, end: 20100826
  9. DOXORUBICIN HYDROCHLORIDE (DOXIL [Suspect]
     Active Substance: DOXORUBICIN HYDROCHLORIDE
     Indication: OVARIAN CANCER STAGE III
     Route: 042
     Dates: start: 20110113, end: 20110113
  10. GEMCITABINE HYDROCHLORIDE. [Suspect]
     Active Substance: GEMCITABINE HYDROCHLORIDE
     Indication: OVARIAN CANCER STAGE III
     Route: 041
     Dates: start: 20110329, end: 20110329
  11. TOPOTECAN [Suspect]
     Active Substance: TOPOTECAN HYDROCHLORIDE
     Indication: LYMPHADENOPATHY
     Dosage: 2 CYCLES
     Route: 041
     Dates: start: 20130326, end: 20130427
  12. DOXORUBICIN HYDROCHLORIDE (DOXIL [Suspect]
     Active Substance: DOXORUBICIN HYDROCHLORIDE
     Indication: OVARIAN CANCER STAGE III
     Route: 042
     Dates: start: 20090929, end: 20090929
  13. DOXORUBICIN HYDROCHLORIDE (DOXIL [Suspect]
     Active Substance: DOXORUBICIN HYDROCHLORIDE
     Indication: OVARIAN CANCER STAGE III
     Route: 042
     Dates: start: 20091201, end: 20091201
  14. DOXORUBICIN HYDROCHLORIDE (DOXIL [Suspect]
     Active Substance: DOXORUBICIN HYDROCHLORIDE
     Indication: OVARIAN CANCER STAGE III
     Route: 042
     Dates: start: 20100204, end: 20100204
  15. DOXORUBICIN HYDROCHLORIDE (DOXIL [Suspect]
     Active Substance: DOXORUBICIN HYDROCHLORIDE
     Indication: OVARIAN CANCER STAGE III
     Route: 042
     Dates: start: 20100622, end: 20100622
  16. DOXORUBICIN HYDROCHLORIDE (DOXIL [Suspect]
     Active Substance: DOXORUBICIN HYDROCHLORIDE
     Indication: OVARIAN CANCER STAGE III
     Route: 042
     Dates: start: 20101005, end: 20101005
  17. DOXORUBICIN HYDROCHLORIDE (DOXIL [Suspect]
     Active Substance: DOXORUBICIN HYDROCHLORIDE
     Indication: OVARIAN CANCER STAGE III
     Route: 042
     Dates: start: 20101109, end: 20101109
  18. GRANISETRON [Concomitant]
     Active Substance: GRANISETRON
     Indication: PROPHYLAXIS OF NAUSEA AND VOMITING
     Route: 017
     Dates: start: 20090526, end: 20110217
  19. DECADRON [Concomitant]
     Active Substance: DEXAMETHASONE
     Indication: PROPHYLAXIS OF NAUSEA AND VOMITING
     Route: 017
     Dates: start: 20090526, end: 20110217
  20. GRAN [Concomitant]
     Active Substance: FILGRASTIM
     Indication: NEUTROPHIL COUNT DECREASED
     Route: 058
     Dates: start: 20100604, end: 20100605
  21. GRAN [Concomitant]
     Active Substance: FILGRASTIM
     Indication: NEUTROPHIL COUNT DECREASED
     Route: 058
     Dates: start: 20101025, end: 20101026
  22. DOXORUBICIN HYDROCHLORIDE (DOXIL [Suspect]
     Active Substance: DOXORUBICIN HYDROCHLORIDE
     Indication: OVARIAN CANCER STAGE III
     Route: 042
     Dates: start: 20090630, end: 20090630
  23. DOXORUBICIN HYDROCHLORIDE (DOXIL [Suspect]
     Active Substance: DOXORUBICIN HYDROCHLORIDE
     Indication: OVARIAN CANCER STAGE III
     Route: 042
     Dates: start: 20100413, end: 20100413
  24. DOXORUBICIN HYDROCHLORIDE (DOXIL [Suspect]
     Active Substance: DOXORUBICIN HYDROCHLORIDE
     Indication: OVARIAN CANCER STAGE III
     Route: 042
     Dates: start: 20110217, end: 20110217
  25. IRINOTECAN HYDROCHLORIDE. [Suspect]
     Active Substance: IRINOTECAN HYDROCHLORIDE
     Indication: LYMPHADENOPATHY
     Dosage: 6 CYCLES
     Route: 041
     Dates: start: 20110623, end: 20111213
  26. PANSPORIN [Concomitant]
     Active Substance: CEFOTIAM HYDROCHLORIDE
     Indication: CENTRAL VENOUS CATHETERISATION
     Route: 042
     Dates: start: 20100311, end: 20100312
  27. DOXORUBICIN HYDROCHLORIDE (DOXIL [Suspect]
     Active Substance: DOXORUBICIN HYDROCHLORIDE
     Indication: OVARIAN CANCER STAGE III
     Route: 042
     Dates: start: 20090825, end: 20090825
  28. DOXORUBICIN HYDROCHLORIDE (DOXIL [Suspect]
     Active Substance: DOXORUBICIN HYDROCHLORIDE
     Indication: OVARIAN CANCER STAGE III
     Route: 042
     Dates: start: 20100727, end: 20100727
  29. GEMCITABINE HYDROCHLORIDE. [Suspect]
     Active Substance: GEMCITABINE HYDROCHLORIDE
     Indication: OVARIAN CANCER STAGE III
     Route: 041
     Dates: start: 20110510, end: 20110510
  30. DOXORUBICIN HYDROCHLORIDE (DOXIL [Suspect]
     Active Substance: DOXORUBICIN HYDROCHLORIDE
     Indication: OVARIAN CANCER STAGE III
     Route: 042
     Dates: start: 20100105, end: 20100105
  31. DOXORUBICIN HYDROCHLORIDE (DOXIL [Suspect]
     Active Substance: DOXORUBICIN HYDROCHLORIDE
     Indication: OVARIAN CANCER STAGE III
     Route: 042
     Dates: start: 20100316, end: 20100316
  32. PACLITAXEL. [Suspect]
     Active Substance: PACLITAXEL
     Indication: LYMPHADENOPATHY
     Route: 041
     Dates: start: 20120123, end: 20130301
  33. CARBOPLATIN. [Suspect]
     Active Substance: CARBOPLATIN
     Indication: LYMPHADENOPATHY
     Dosage: RECEIVED 14 CYCLES
     Route: 041
     Dates: start: 20120124, end: 20130301
  34. GRANISETRON [Concomitant]
     Active Substance: GRANISETRON
     Indication: PROPHYLAXIS OF NAUSEA AND VOMITING
     Route: 017
     Dates: start: 20090526, end: 20110217
  35. ALFAROL [Concomitant]
     Active Substance: ALFACALCIDOL
     Route: 048
  36. DOXORUBICIN HYDROCHLORIDE (DOXIL [Suspect]
     Active Substance: DOXORUBICIN HYDROCHLORIDE
     Indication: OVARIAN CANCER STAGE III
     Route: 042
     Dates: end: 20110329
  37. GEMCITABINE HYDROCHLORIDE. [Suspect]
     Active Substance: GEMCITABINE HYDROCHLORIDE
     Indication: OVARIAN CANCER STAGE III
     Route: 041
     Dates: start: 20110419, end: 20110419
  38. GEMCITABINE HYDROCHLORIDE. [Suspect]
     Active Substance: GEMCITABINE HYDROCHLORIDE
     Indication: OVARIAN CANCER STAGE III
     Dosage: 4 CYCLES IN TOTAL
     Route: 041
     Dates: start: 20110531, end: 20110531
  39. DECADRON [Concomitant]
     Active Substance: DEXAMETHASONE
     Indication: PROPHYLAXIS OF NAUSEA AND VOMITING
     Route: 017
     Dates: start: 20090526, end: 20110217
  40. GRANISETRON [Concomitant]
     Active Substance: GRANISETRON
     Indication: CHEMOTHERAPY
     Route: 017
     Dates: start: 20090526, end: 20110217
  41. NEUTROGIN [Concomitant]
     Active Substance: LENOGRASTIM
     Indication: NEUTROPHIL COUNT DECREASED
     Route: 058
     Dates: start: 20090615, end: 20090617
  42. GRAN [Concomitant]
     Active Substance: FILGRASTIM
     Indication: NEUTROPHIL COUNT DECREASED
     Route: 058
     Dates: start: 20100913, end: 20100914
  43. NASEA [Concomitant]
     Active Substance: RAMOSETRON HYDROCHLORIDE
     Indication: NAUSEA
     Route: 042
     Dates: start: 20100413
  44. PYDOXAL [Concomitant]
     Active Substance: PYRIDOXAL
     Route: 048
     Dates: start: 20090526, end: 201102

REACTIONS (1)
  - Squamous cell carcinoma of the tongue [Recovered/Resolved with Sequelae]

NARRATIVE: CASE EVENT DATE: 20130830
